FAERS Safety Report 20776130 (Version 8)
Quarter: 2022Q2

REPORT INFORMATION
  Report Type: Report from Study
  Country: US (occurrence: US)
  Receive Date: 20220502
  Receipt Date: 20220617
  Transmission Date: 20220720
  Serious: Yes (Hospitalization)
  Sender: FDA-Public Use
  Company Number: US-NOVARTISTESTPH-NVSC2022US100692

PATIENT
  Age: 19 Year
  Sex: Female
  Weight: 67.574 kg

DRUGS (8)
  1. TREPROSTINIL [Suspect]
     Active Substance: TREPROSTINIL
     Indication: Pulmonary arterial hypertension
     Dosage: 12 NG/KG/MIN, CONT
     Route: 042
     Dates: start: 20220419
  2. TREPROSTINIL [Suspect]
     Active Substance: TREPROSTINIL
     Dosage: 14 NG/KG/MIN, CONT
     Route: 042
  3. TREPROSTINIL [Suspect]
     Active Substance: TREPROSTINIL
     Dosage: 0.012 UG/KG, CONT
     Route: 058
     Dates: end: 20220427
  4. TREPROSTINIL [Suspect]
     Active Substance: TREPROSTINIL
     Dosage: 0.014 UG/KG, CONT
     Route: 058
     Dates: start: 20220427
  5. TREPROSTINIL [Suspect]
     Active Substance: TREPROSTINIL
     Dosage: 16 NG/KG/MIN, CONT
     Route: 042
  6. TREPROSTINIL [Suspect]
     Active Substance: TREPROSTINIL
     Dosage: UNK
     Route: 058
  7. TADALAFIL [Concomitant]
     Active Substance: TADALAFIL
     Indication: Product used for unknown indication
     Dosage: UNK
     Route: 065
  8. LETAIRIS [Concomitant]
     Active Substance: AMBRISENTAN
     Indication: Product used for unknown indication
     Dosage: UNK
     Route: 065

REACTIONS (9)
  - Vascular device infection [Unknown]
  - Fatigue [Not Recovered/Not Resolved]
  - Malaise [Unknown]
  - Myalgia [Unknown]
  - Chest discomfort [Unknown]
  - Weight increased [Unknown]
  - Headache [Unknown]
  - Nausea [Unknown]
  - Vomiting [Recovered/Resolved]

NARRATIVE: CASE EVENT DATE: 20220427
